FAERS Safety Report 7020686-5 (Version None)
Quarter: 2010Q3

REPORT INFORMATION
  Report Type: 
  Country: None (occurrence: None)
  Receive Date: 20100929
  Receipt Date: 20100920
  Transmission Date: 20110219
  Serious: Yes (Hospitalization, Other)
  Sender: FDA-Public Use
  Company Number: PHHY2010US62470

PATIENT
  Sex: Male
  Weight: 48.4 kg

DRUGS (1)
  1. EXJADE [Suspect]
     Indication: SICKLE CELL ANAEMIA
     Dosage: 1000 MG/DAY
     Route: 048
     Dates: start: 20100316

REACTIONS (5)
  - HAEMOGLOBIN DECREASED [None]
  - PAIN [None]
  - SICKLE CELL ANAEMIA WITH CRISIS [None]
  - TRANSFUSION REACTION [None]
  - TREATMENT NONCOMPLIANCE [None]
